FAERS Safety Report 6389727-2 (Version None)
Quarter: 2009Q4

REPORT INFORMATION
  Report Type: 
  Country: None (occurrence: None)
  Receive Date: 20091002
  Receipt Date: 20091002
  Transmission Date: 20100525
  Serious: Yes (Other)
  Sender: FDA-Public Use
  Company Number: None

PATIENT
  Age: 40 Year
  Sex: Female
  Weight: 90.7194 kg

DRUGS (1)
  1. YASMIN [Suspect]
     Indication: MENSTRUATION IRREGULAR
     Dosage: ONCE A DAYT
     Dates: start: 20050101, end: 20080401

REACTIONS (7)
  - DEPRESSION [None]
  - FATIGUE [None]
  - HEADACHE [None]
  - NIGHT SWEATS [None]
  - NO THERAPEUTIC RESPONSE [None]
  - SLUGGISHNESS [None]
  - WEIGHT INCREASED [None]
